FAERS Safety Report 6160423-X (Version None)
Quarter: 2009Q2

REPORT INFORMATION
  Report Type: 
  Country: None (occurrence: None)
  Receive Date: 20090420
  Receipt Date: 20090414
  Transmission Date: 20091009
  Serious: Yes (Hospitalization)
  Sender: FDA-Public Use
  Company Number: DE-JNJFOC-20090206271

PATIENT
  Age: 61 Year
  Sex: Male

DRUGS (11)
  1. RISPERDAL [Suspect]
     Route: 048
  2. RISPERDAL [Suspect]
     Route: 048
  3. RISPERDAL [Suspect]
     Indication: DRUG USE FOR UNKNOWN INDICATION
     Route: 048
  4. CIATYL-Z ACUPHASE [Suspect]
     Indication: DRUG USE FOR UNKNOWN INDICATION
     Route: 030
  5. ERGENYL [Concomitant]
     Route: 048
  6. ERGENYL [Concomitant]
     Route: 048
  7. ATACAND [Concomitant]
     Indication: HYPERTENSION
     Route: 048
  8. ATACAND HCT [Concomitant]
     Indication: HYPERTENSION
     Route: 048
  9. KALINOR [Concomitant]
     Route: 048
  10. KALINOR [Concomitant]
     Route: 048
  11. ZOPICLON [Concomitant]
     Route: 048

REACTIONS (3)
  - ARTERIOSCLEROSIS [None]
  - OEDEMA [None]
  - SENSORY LOSS [None]
